FAERS Safety Report 6327202-1 (Version None)
Quarter: 2009Q3

REPORT INFORMATION
  Report Type: 
  Country: None (occurrence: None)
  Receive Date: 20090825
  Receipt Date: 20090820
  Transmission Date: 20100115
  Serious: Yes (Other)
  Sender: FDA-Public Use
  Company Number: US-AVENTIS-200915096US

PATIENT
  Sex: Male
  Weight: 131.8 kg

DRUGS (11)
  1. AMARYL [Suspect]
     Dosage: DOSE: UNK
     Dates: end: 20090501
  2. METFORMIN HCL [Suspect]
     Dosage: DOSE: UNK
     Dates: end: 20090501
  3. ATENOLOL [Concomitant]
     Indication: HYPERTENSION
  4. HYDROCHLOROTHIAZIDE [Concomitant]
     Indication: FLUID RETENTION
  5. LISINOPRIL [Concomitant]
     Indication: BLOOD PRESSURE
  6. ALLOPURINOL [Concomitant]
  7. COZAAR [Concomitant]
     Indication: BLOOD PRESSURE
  8. LIPITOR [Concomitant]
  9. AMLODIPINE BESYLATE [Concomitant]
  10. CYTRA-K [Concomitant]
     Dosage: DOSE: 1 OR 2 PACKETS
  11. CYTRA-K [Concomitant]
     Dosage: DOSE: 1 OR 2 PACKETS

REACTIONS (3)
  - ACIDOSIS [None]
  - BLOOD BICARBONATE DECREASED [None]
  - BLOOD GLUCOSE INCREASED [None]
